FAERS Safety Report 6423709-7 (Version None)
Quarter: 2009Q4

REPORT INFORMATION
  Report Type: 
  Country: None (occurrence: None)
  Receive Date: 20091102
  Receipt Date: 20091019
  Transmission Date: 20100525
  Serious: Yes (Hospitalization)
  Sender: FDA-Public Use
  Company Number: NL-GENENTECH-292328

PATIENT
  Sex: Male

DRUGS (7)
  1. BEVACIZUMAB [Suspect]
     Indication: COLORECTAL CANCER
     Dosage: 468 MG, UNK
     Route: 042
     Dates: start: 20090116
  2. CAPECITABINE [Suspect]
     Indication: COLORECTAL CANCER
     Dosage: 3600 MG, UNK
     Route: 048
     Dates: start: 20090116
  3. OXALIPLATIN [Suspect]
     Indication: COLORECTAL CANCER
     Dosage: 220 MG, UNK
     Route: 042
     Dates: start: 20090116
  4. ACETAMINOPHEN [Concomitant]
     Indication: DRUG USE FOR UNKNOWN INDICATION
  5. TINZAPARIN [Concomitant]
     Indication: DRUG USE FOR UNKNOWN INDICATION
  6. DICLOFENAC [Concomitant]
     Indication: DRUG USE FOR UNKNOWN INDICATION
  7. PANTOPRAZOL [Concomitant]
     Indication: DRUG USE FOR UNKNOWN INDICATION

REACTIONS (2)
  - DECREASED APPETITE [None]
  - MALIGNANT ASCITES [None]
